FAERS Safety Report 11339898 (Version 1)
Quarter: 2015Q3

REPORT INFORMATION
  Report Type: Spontaneous
  Country: FR (occurrence: None)
  Receive Date: 20150803
  Receipt Date: 20150803
  Transmission Date: 20151125
  Serious: Yes (Hospitalization)
  Sender: FDA-Public Use
  Company Number: 2015HINLIT0625

PATIENT
  Age: 17 Year
  Sex: Male

DRUGS (5)
  1. OXAZEPAM. [Concomitant]
     Active Substance: OXAZEPAM
  2. LOXAPINE. [Concomitant]
     Active Substance: LOXAPINE
  3. AMISULPRIDE [Concomitant]
     Active Substance: AMISULPRIDE
  4. RISPERIDONE. [Concomitant]
     Active Substance: RISPERIDONE
  5. ARIPIPRAZOLE (ARIPIPRAZOLE) UNKNOWN [Suspect]
     Active Substance: ARIPIPRAZOLE
     Indication: PSYCHOTIC DISORDER

REACTIONS (3)
  - Hepatotoxicity [None]
  - Cholangitis sclerosing [None]
  - Psychiatric decompensation [None]
